FAERS Safety Report 20510560 (Version 5)
Quarter: 2022Q2

REPORT INFORMATION
  Report Type: Report from Study
  Country: US (occurrence: US)
  Receive Date: 20220224
  Receipt Date: 20220429
  Transmission Date: 20220720
  Serious: Yes (Death, Hospitalization)
  Sender: FDA-Public Use
  Company Number: US-NOVARTISPH-NVSC2022US038458

PATIENT
  Sex: Female
  Weight: 40.816 kg

DRUGS (3)
  1. TREPROSTINIL [Suspect]
     Active Substance: TREPROSTINIL
     Indication: Pulmonary arterial hypertension
     Dosage: 174 NG/KG/MIN, CONT (STRENGTH:1 MG/ML)
     Route: 042
     Dates: start: 20220216
  2. TREPROSTINIL [Suspect]
     Active Substance: TREPROSTINIL
     Dosage: UNK, CONT
     Route: 042
     Dates: start: 202202
  3. COUMADIN [Concomitant]
     Active Substance: WARFARIN SODIUM
     Indication: Product used for unknown indication
     Dosage: UNK
     Route: 065

REACTIONS (7)
  - Cardiac failure chronic [Fatal]
  - End stage renal disease [Fatal]
  - Pulmonary arterial hypertension [Fatal]
  - Fluid retention [Unknown]
  - Panic attack [Unknown]
  - Renal impairment [Unknown]
  - Dyspnoea [Unknown]
